FAERS Safety Report 8304489-7 (Version None)
Quarter: 2012Q2

REPORT INFORMATION
  Report Type: 
  Country: None (occurrence: None)
  Receive Date: 20120423
  Receipt Date: 20120411
  Transmission Date: 20120825
  Serious: Yes (Hospitalization)
  Sender: FDA-Public Use
  Company Number: US-SANOFI-AVENTIS-2012SA025210

PATIENT

DRUGS (1)
  1. RILUTEK [Suspect]

REACTIONS (2)
  - HOSPITALISATION [None]
  - GASTROINTESTINAL TUBE INSERTION [None]
